FAERS Safety Report 9003967 (Version 1)
Quarter: 2013Q1

REPORT INFORMATION
  Report Type: Spontaneous
  Country: MY (occurrence: MY)
  Receive Date: 20130109
  Receipt Date: 20130109
  Transmission Date: 20140127
  Serious: Yes (Hospitalization)
  Sender: FDA-Public Use
  Company Number: MY-009507513-1301MYS001929

PATIENT
  Age: 70 Year
  Sex: Female

DRUGS (2)
  1. FOSAMAX PLUS [Suspect]
     Indication: OSTEOPOROSIS
     Dosage: ONCE WEEKLY
     Route: 048
     Dates: start: 200601, end: 2012
  2. FOSAMAX PLUS [Suspect]
     Indication: PROPHYLAXIS

REACTIONS (1)
  - Atypical fracture [Unknown]
